FAERS Safety Report 24825273 (Version 1)
Quarter: 2025Q1

REPORT INFORMATION
  Report Type: Spontaneous
  Country: US (occurrence: US)
  Receive Date: 20250109
  Receipt Date: 20250109
  Transmission Date: 20250408
  Serious: No
  Sender: PHARMACOSMOS A/S
  Company Number: US-NEBO-683276

PATIENT

DRUGS (6)
  1. ELITEK [Concomitant]
     Active Substance: RASBURICASE
     Dates: start: 20241218, end: 20241218
  2. DEXAMETHASONE [Concomitant]
     Active Substance: DEXAMETHASONE
     Dates: start: 20241218, end: 20241218
  3. COSELA [Suspect]
     Active Substance: TRILACICLIB DIHYDROCHLORIDE
     Indication: Small cell lung cancer extensive stage
     Dates: start: 20241218, end: 20241218
  4. CARBOPLATIN [Concomitant]
     Active Substance: CARBOPLATIN
     Dates: start: 20241217, end: 20241217
  5. ETOPOSIDE [Concomitant]
     Active Substance: ETOPOSIDE
     Dates: start: 20241217, end: 20241217
  6. IMFINZI [Concomitant]
     Active Substance: DURVALUMAB
     Dates: start: 20241217, end: 20241217

REACTIONS (2)
  - Hot flush [Recovered/Resolved]
  - Procedural anxiety [Recovered/Resolved]

NARRATIVE: CASE EVENT DATE: 20241218
